FAERS Safety Report 8568552 (Version 3)
Quarter: 2012Q4

REPORT INFORMATION
  Report Type: 
  Country: US (occurrence: US)
  Receive Date: 20120518
  Receipt Date: 20121018
  Transmission Date: 20130627
  Serious: Yes (Hospitalization)
  Sender: FDA-Public Use
  Company Number: US-UCBSA-057172

PATIENT
  Age: 61 Year
  Sex: Male

DRUGS (3)
  1. CIMZIA [Suspect]
     Indication: CROHN^S DISEASE
     Dates: start: 20111111
  2. ZEPRO [Concomitant]
     Dates: end: 201203
  3. ZEPRO [Concomitant]
     Dates: start: 2012

REACTIONS (2)
  - Abscess [Recovered/Resolved]
  - Cholecystitis [Unknown]
